FAERS Safety Report 25177582 (Version 1)
Quarter: 2025Q2

REPORT INFORMATION
  Report Type: Other
  Country: GB (occurrence: GB)
  Receive Date: 20250409
  Receipt Date: 20250409
  Transmission Date: 20250717
  Serious: Yes (Other)
  Sender: MACLEODS
  Company Number: GB-MHRA-TPP20661969C4931302YC1743411104243

PATIENT

DRUGS (8)
  1. ROSUVASTATIN [Suspect]
     Active Substance: ROSUVASTATIN
     Indication: Ill-defined disorder
     Dosage: TAKE ONE AT NIGHT
     Route: 065
  2. METFORMIN [Concomitant]
     Active Substance: METFORMIN HYDROCHLORIDE
     Indication: Ill-defined disorder
     Dosage: TAKE ONE TABLET WITH EVENING MEAL
     Route: 065
     Dates: start: 20250310
  3. CHLORAMPHENICOL [Concomitant]
     Active Substance: CHLORAMPHENICOL
     Indication: Ill-defined disorder
     Dosage: APPLY 4 TIMES A DAY
     Route: 065
     Dates: start: 20250331
  4. DERMOL [Concomitant]
     Active Substance: BENZALKONIUM CHLORIDE\CHLORHEXIDINE HYDROCHLORIDE\ISOPROPYL MYRISTATE\PARAFFIN
     Indication: Ill-defined disorder
     Route: 065
     Dates: start: 20240715
  5. Hyabak [Concomitant]
     Indication: Ill-defined disorder
     Route: 065
     Dates: start: 20240715
  6. LEVOTHYROXINE [Concomitant]
     Active Substance: LEVOTHYROXINE
     Indication: Ill-defined disorder
     Dosage: ONE TO BE TAKEN DAILY
     Route: 065
     Dates: start: 20240715
  7. SILDENAFIL [Concomitant]
     Active Substance: SILDENAFIL
     Indication: Ill-defined disorder
     Route: 065
     Dates: start: 20240715
  8. EZETIMIBE [Concomitant]
     Active Substance: EZETIMIBE
     Indication: Ill-defined disorder
     Dosage: TAKE ONE TABLET DAILY
     Route: 065
     Dates: start: 20240913, end: 20250310

REACTIONS (1)
  - Muscle spasms [Recovering/Resolving]
